APPROVED DRUG PRODUCT: TREPROSTINIL
Active Ingredient: TREPROSTINIL
Strength: 1MG/ML
Dosage Form/Route: INJECTABLE;INTRAVENOUS, SUBCUTANEOUS
Application: A203649 | Product #001 | TE Code: AP
Applicant: SANDOZ INC
Approved: Nov 30, 2017 | RLD: No | RS: No | Type: RX